FAERS Safety Report 23433155 (Version 2)
Quarter: 2024Q1

REPORT INFORMATION
  Report Type: Spontaneous
  Country: US (occurrence: US)
  Receive Date: 20240123
  Receipt Date: 20240207
  Transmission Date: 20240410
  Serious: No
  Sender: FDA-Public Use
  Company Number: US-SA-SAC20240117000134

PATIENT
  Age: 47 Year
  Sex: Female
  Weight: 89 kg

DRUGS (2)
  1. DUPIXENT [Suspect]
     Active Substance: DUPILUMAB
     Indication: Asthma
     Dosage: 300 MG, QOW
     Route: 058
  2. DUPIXENT [Suspect]
     Active Substance: DUPILUMAB
     Dosage: UNK
     Dates: start: 202312

REACTIONS (8)
  - Scab [Unknown]
  - Skin ulcer [Unknown]
  - Condition aggravated [Unknown]
  - Cheilitis [Unknown]
  - Condition aggravated [Unknown]
  - Nasal ulcer [Unknown]
  - Condition aggravated [Unknown]
  - Rash [Unknown]

NARRATIVE: CASE EVENT DATE: 20231220
